FAERS Safety Report 8097119-3 (Version None)
Quarter: 2012Q1

REPORT INFORMATION
  Report Type: 
  Country: None (occurrence: None)
  Receive Date: 20120129
  Receipt Date: 20111121
  Transmission Date: 20120608
  Serious: No
  Sender: FDA-Public Use
  Company Number: US-ABBOTT-11P-163-0876564-00

PATIENT
  Age: 30 Year
  Sex: Male

DRUGS (3)
  1. EFFEXOR XR [Concomitant]
     Indication: DEPRESSION
  2. PURINETHOL [Concomitant]
     Indication: PRODUCT USED FOR UNKNOWN INDICATION
  3. HUMIRA [Suspect]
     Indication: CROHN'S DISEASE
     Dates: start: 20070101

REACTIONS (1)
  - TENSION HEADACHE [None]
